FAERS Safety Report 9171687 (Version 1)
Quarter: 2013Q1

REPORT INFORMATION
  Report Type: Spontaneous
  Country: US (occurrence: None)
  Receive Date: 20130313
  Receipt Date: 20130313
  Transmission Date: 20140127
  Serious: Yes (Other)
  Sender: FDA-Public Use
  Company Number: PR-AE13-000208

PATIENT
  Sex: Female

DRUGS (1)
  1. ECOTRIN [Suspect]
     Indication: PRODUCT USED FOR UNKNOWN INDICATION
     Dosage: ORALLY
     Route: 048

REACTIONS (2)
  - Macular degeneration [None]
  - Retinal haemorrhage [None]
